FAERS Safety Report 7166557-5 (Version None)
Quarter: 2010Q4

REPORT INFORMATION
  Report Type: 
  Country: None (occurrence: None)
  Receive Date: 20101203
  Receipt Date: 20101117
  Transmission Date: 20110411
  Serious: Yes (Hospitalization)
  Sender: FDA-Public Use
  Company Number: 2010-2825

PATIENT
  Age: 13 Year
  Sex: Male
  Weight: 35 kg

DRUGS (4)
  1. INCRELEX [Suspect]
     Dosage: SEE IMAGE
     Route: 058
     Dates: start: 20091005, end: 20091213
  2. INCRELEX [Suspect]
     Dosage: SEE IMAGE
     Route: 058
     Dates: start: 20091214, end: 20100114
  3. INCRELEX [Suspect]
     Dosage: SEE IMAGE
     Route: 058
     Dates: start: 20100115, end: 20100311
  4. INCRELEX [Suspect]
     Dosage: SEE IMAGE
     Route: 058
     Dates: start: 20090312

REACTIONS (1)
  - NEPHRITIS [None]
